FAERS Safety Report 9544065 (Version 1)
Quarter: 2013Q3

REPORT INFORMATION
  Report Type: Spontaneous
  Country: JP (occurrence: JP)
  Receive Date: 20130923
  Receipt Date: 20130923
  Transmission Date: 20140515
  Serious: Yes (Other)
  Sender: FDA-Public Use
  Company Number: JP-ROXANE LABORATORIES, INC.-2013-RO-01544RO

PATIENT
  Age: 36 Year
  Sex: Female

DRUGS (7)
  1. CYCLOPHOSPHAMIDE TABLETS USP [Suspect]
     Indication: BREAST CANCER
  2. DEXAMETHASONE [Suspect]
     Indication: PREMEDICATION
  3. DEXAMETHASONE [Suspect]
     Dosage: 8 MG
  4. DOCETAXEL [Suspect]
     Indication: BREAST CANCER
     Route: 042
  5. NAB-PACLITAXEL [Suspect]
     Indication: BREAST CANCER
     Route: 042
  6. 5-FLUOROURACIL [Suspect]
     Indication: BREAST CANCER
  7. EPIRUBICIN [Suspect]
     Indication: BREAST CANCER

REACTIONS (3)
  - Peripheral sensory neuropathy [Unknown]
  - Neutropenia [Unknown]
  - Hypersensitivity [Recovered/Resolved]
